FAERS Safety Report 11145186 (Version 1)
Quarter: 2015Q2

REPORT INFORMATION
  Report Type: Spontaneous
  Country: None (occurrence: None)
  Receive Date: 20150526
  Receipt Date: 20150526
  Transmission Date: 20150821
  Serious: No
  Sender: FDA-Public Use
  Company Number: None

PATIENT
  Age: 8 Month
  Sex: Male

DRUGS (1)
  1. BABY TEETHING [Suspect]
     Active Substance: ARABICA COFFEE BEAN\ATROPA BELLADONNA\CALCIUM PHOSPHATE\CHAMOMILE
     Indication: TEETHING
     Dosage: 2 PILLS AS NEEDED
     Route: 048

REACTIONS (4)
  - Staring [None]
  - Tremor [None]
  - Seizure like phenomena [None]
  - Respiratory rate decreased [None]

NARRATIVE: CASE EVENT DATE: 20150521
